FAERS Safety Report 4937379-8 (Version None)
Quarter: 2006Q1

REPORT INFORMATION
  Report Type: 
  Country: None (occurrence: None)
  Receive Date: 20060306
  Receipt Date: 20051121
  Transmission Date: 20060701
  Serious: No
  Sender: FDA-Public Use
  Company Number: 2006RL000064

PATIENT
  Sex: 0

DRUGS (2)
  1. OMACOR [Suspect]
     Dosage: 1GM;QD;PO
     Route: 048
  2. AMICAR [Suspect]
     Dosage: 1 GM;QD;

REACTIONS (1)
  - MEDICATION ERROR [None]
